FAERS Safety Report 5481129-6 (Version None)
Quarter: 2007Q4

REPORT INFORMATION
  Report Type: 
  Country: None (occurrence: None)
  Receive Date: 20071004
  Receipt Date: 20070919
  Transmission Date: 20080405
  Serious: Yes (Other)
  Sender: FDA-Public Use
  Company Number: 238022K07USA

PATIENT
  Age: 63 Year
  Sex: Female

DRUGS (5)
  1. REBIF [Suspect]
     Indication: MULTIPLE SCLEROSIS
     Dosage: 44 MCG, 3 IN 1 WEEKS, SUBCUTANEOUS
     Route: 058
     Dates: start: 20070712
  2. SYNTHROID [Concomitant]
  3. METFORMIN HCL [Concomitant]
  4. DETROL [Concomitant]
  5. MEDICATION FOR HIGH BLOOD PRESSURE (ANTIHYPERTENSIVES) [Concomitant]

REACTIONS (1)
  - BASAL CELL CARCINOMA [None]
